FAERS Safety Report 13362958 (Version 1)
Quarter: 2017Q1

REPORT INFORMATION
  Report Type: Spontaneous
  Country: US (occurrence: US)
  Receive Date: 20170322
  Receipt Date: 20170322
  Transmission Date: 20170429
  Serious: Yes (Disabling)
  Sender: FDA-Public Use
  Company Number: None

PATIENT
  Age: 61 Year
  Sex: Female
  Weight: 76.5 kg

DRUGS (5)
  1. GLUCOSAMINE HCL WITH MSM [Concomitant]
  2. LEVAQUIN [Suspect]
     Active Substance: LEVOFLOXACIN
  3. L-LYSINE [Concomitant]
     Active Substance: LYSINE
  4. LEVOFLOXACIN 500 MG [Suspect]
     Active Substance: LEVOFLOXACIN
     Indication: SINUSITIS
     Dosage: ?          QUANTITY:1 TABLET(S);?
     Route: 048
     Dates: start: 20170224, end: 20170306
  5. MULTI-VITAMIN WITH VITAMIN D3 [Concomitant]

REACTIONS (12)
  - Rash pruritic [None]
  - Swelling face [None]
  - Tendonitis [None]
  - Burning sensation [None]
  - Nausea [None]
  - Chest discomfort [None]
  - Vomiting [None]
  - Dyspnoea [None]
  - Dyspepsia [None]
  - Chest pain [None]
  - Pain in extremity [None]
  - Drug hypersensitivity [None]

NARRATIVE: CASE EVENT DATE: 20170224
